FAERS Safety Report 8530424 (Version 4)
Quarter: 2013Q2

REPORT INFORMATION
  Report Type: Spontaneous
  Country: US (occurrence: US)
  Receive Date: 20120425
  Receipt Date: 20130521
  Transmission Date: 20140414
  Serious: Yes (Death, Other)
  Sender: FDA-Public Use
  Company Number: US-PURDUE-USA-2012-0085826

PATIENT
  Sex: 0

DRUGS (2)
  1. OXYCONTIN (NDA 22-272) [Suspect]
     Indication: SURGERY
     Dosage: 10 MG, SEE TEXT
     Route: 064
     Dates: start: 201201
  2. OXYCONTIN (NDA 22-272) [Suspect]
     Dosage: 120 MG, Q12H
     Route: 064
     Dates: start: 201201

REACTIONS (4)
  - Foetal death [Fatal]
  - Cardiac arrest [Fatal]
  - Trisomy 22 [Unknown]
  - Foetal exposure during pregnancy [Unknown]
